FAERS Safety Report 9141205 (Version 2)
Quarter: 2013Q2

REPORT INFORMATION
  Report Type: Spontaneous
  Country: US (occurrence: US)
  Receive Date: 20130305
  Receipt Date: 20130404
  Transmission Date: 20140414
  Serious: No
  Sender: FDA-Public Use
  Company Number: US-AMGEN-USASP2013004573

PATIENT
  Age: 51 Year
  Sex: Female

DRUGS (4)
  1. ENBREL [Suspect]
     Indication: RHEUMATOID ARTHRITIS
     Dosage: 50 MG, QWK
     Dates: start: 20130120
  2. ARAVA [Concomitant]
     Dosage: 20 MG, DAILY
     Dates: start: 2010
  3. PLAQUENIL                          /00072602/ [Concomitant]
     Dosage: 200 MG, TWICE DAILY
     Route: 048
     Dates: start: 2010
  4. LEFLUNOMIDE [Concomitant]
     Dosage: 20 MG, QD
     Route: 048
     Dates: start: 201301

REACTIONS (6)
  - Fatigue [Recovered/Resolved]
  - Dizziness [Recovered/Resolved]
  - Joint stiffness [Recovered/Resolved]
  - Arthralgia [Not Recovered/Not Resolved]
  - Back pain [Not Recovered/Not Resolved]
  - Pain in extremity [Not Recovered/Not Resolved]
